FAERS Safety Report 5026600-6 (Version None)
Quarter: 2006Q2

REPORT INFORMATION
  Report Type: 
  Country: None (occurrence: None)
  Receive Date: 20060615
  Receipt Date: 20060606
  Transmission Date: 20061013
  Serious: Yes (Other)
  Sender: FDA-Public Use
  Company Number: US-JNJFOC-20060601728

PATIENT
  Sex: Female
  Weight: 58.97 kg

DRUGS (2)
  1. ORTHO-NOVUM 7/7/7-21 [Suspect]
     Indication: OVARIAN CYST
  2. ORTHO-NOVUM 7/7/7-21 [Suspect]

REACTIONS (2)
  - METRORRHAGIA [None]
  - OVARIAN CYST [None]
